FAERS Safety Report 6984448-7 (Version None)
Quarter: 2010Q3

REPORT INFORMATION
  Report Type: 
  Country: None (occurrence: None)
  Receive Date: 20100915
  Receipt Date: 20100906
  Transmission Date: 20110219
  Serious: Yes (Hospitalization)
  Sender: FDA-Public Use
  Company Number: DE-BAXTER-2010BH022865

PATIENT
  Age: 78 Year
  Sex: Male
  Weight: 85 kg

DRUGS (16)
  1. GAMMAGARD LIQUID [Suspect]
     Indication: IDIOPATHIC THROMBOCYTOPENIC PURPURA
     Route: 042
     Dates: start: 20100901, end: 20100901
  2. GAMMAGARD LIQUID [Suspect]
     Route: 042
     Dates: start: 20100901, end: 20100901
  3. GAMMAGARD LIQUID [Suspect]
     Route: 042
     Dates: start: 20100831, end: 20100831
  4. PREDNISONE [Concomitant]
     Indication: IDIOPATHIC THROMBOCYTOPENIC PURPURA
     Route: 048
     Dates: start: 20100831, end: 20100901
  5. OMEP [Concomitant]
     Route: 048
  6. MOLSIDOMINE [Concomitant]
     Route: 048
  7. CONCOR [Concomitant]
     Route: 048
  8. SIMVASTATIN [Concomitant]
     Route: 048
  9. GODAMED [Concomitant]
     Route: 048
  10. TORASEMIDE [Concomitant]
  11. ZOLPIDEM [Concomitant]
  12. BLOPRESS [Concomitant]
  13. TILIDINE [Concomitant]
     Route: 048
  14. NALOXONE [Concomitant]
     Route: 048
  15. CITALOPRAM HYDROBROMIDE [Concomitant]
     Route: 048
  16. PLAVIX [Concomitant]
     Route: 048

REACTIONS (3)
  - ABDOMINAL PAIN [None]
  - CHEST PAIN [None]
  - MYOCARDIAL INFARCTION [None]
